FAERS Safety Report 8121458-0 (Version None)
Quarter: 2012Q1

REPORT INFORMATION
  Report Type: 
  Country: None (occurrence: None)
  Receive Date: 20120208
  Receipt Date: 20120207
  Transmission Date: 20120608
  Serious: No
  Sender: FDA-Public Use
  Company Number: US-PFIZER INC-2012033736

PATIENT
  Sex: Male
  Weight: 104.31 kg

DRUGS (3)
  1. CHANTIX [Suspect]
     Indication: SMOKING CESSATION THERAPY
     Dosage: 0.5 MG, 1X/DAY
     Route: 048
     Dates: start: 20111201, end: 20111201
  2. CHANTIX [Suspect]
     Dosage: UNK
     Route: 048
     Dates: start: 20111201
  3. XANAX [Concomitant]
     Indication: INSOMNIA
     Dosage: UNK

REACTIONS (3)
  - NAUSEA [None]
  - HEADACHE [None]
  - ABNORMAL DREAMS [None]
